FAERS Safety Report 5093836-8 (Version None)
Quarter: 2006Q3

REPORT INFORMATION
  Report Type: 
  Country: None (occurrence: None)
  Receive Date: 20060831
  Receipt Date: 20060821
  Transmission Date: 20061208
  Serious: Yes (Hospitalization)
  Sender: FDA-Public Use
  Company Number: PHRM2006FR02387

PATIENT
  Age: 82 Year
  Sex: Female

DRUGS (7)
  1. TAREG [Suspect]
     Indication: HYPERTENSION
     Dosage: 80 MG/DAY
     Route: 048
  2. BACTRIM [Suspect]
     Dosage: 2 DF, QD
     Route: 048
     Dates: start: 20060222, end: 20060225
  3. LASILIX [Suspect]
     Indication: HYPERTENSION
     Route: 048
  4. PREVISCAN [Suspect]
     Indication: ATRIAL FLUTTER
     Dosage: 15 MG/DAY
     Route: 048
     Dates: start: 20060223
  5. TENORMIN [Suspect]
     Indication: HYPERTENSION
     Dosage: 100 MG/DAY
     Route: 048
  6. DIGOXIN [Concomitant]
  7. ASPIRIN [Concomitant]

REACTIONS (12)
  - ANTINEUTROPHIL CYTOPLASMIC ANTIBODY POSITIVE [None]
  - BLOOD CREATININE INCREASED [None]
  - BLOOD UREA INCREASED [None]
  - CREATININE RENAL CLEARANCE DECREASED [None]
  - EAR, NOSE AND THROAT EXAMINATION ABNORMAL [None]
  - GLOMERULONEPHRITIS [None]
  - HAEMATURIA [None]
  - HYPERKALAEMIA [None]
  - LUNG DISORDER [None]
  - PROTEINURIA [None]
  - RENAL FAILURE [None]
  - WEGENER'S GRANULOMATOSIS [None]
